FAERS Safety Report 19938779 (Version 1)
Quarter: 2021Q4

REPORT INFORMATION
  Report Type: Spontaneous
  Country: US (occurrence: US)
  Receive Date: 20211011
  Receipt Date: 20211011
  Transmission Date: 20220303
  Serious: No
  Sender: FDA-Public Use
  Company Number: US-AJANTA PHARMA USA INC.-2120393

PATIENT
  Age: 57 Year
  Sex: Female
  Weight: 72.73 kg

DRUGS (1)
  1. ARIPIPRAZOLE [Suspect]
     Active Substance: ARIPIPRAZOLE
     Indication: Anxiety
     Route: 048
     Dates: start: 202001

REACTIONS (10)
  - Food intolerance [Unknown]
  - Food allergy [Unknown]
  - Hyperventilation [Recovered/Resolved]
  - Dysphonia [Unknown]
  - Malaise [Recovering/Resolving]
  - Oropharyngeal discomfort [Recovering/Resolving]
  - Metabolic disorder [Recovering/Resolving]
  - Off label use [Recovered/Resolved]
  - Hypersensitivity [Unknown]
  - Abdominal discomfort [Recovering/Resolving]

NARRATIVE: CASE EVENT DATE: 20200101
